FAERS Safety Report 9472914 (Version 1)
Quarter: 2013Q3

REPORT INFORMATION
  Report Type: Spontaneous
  Country: US (occurrence: US)
  Receive Date: 20130823
  Receipt Date: 20130823
  Transmission Date: 20140515
  Serious: No
  Sender: FDA-Public Use
  Company Number: US-BRISTOL-MYERS SQUIBB COMPANY-17224064

PATIENT
  Age: 62 Year
  Sex: Male

DRUGS (11)
  1. SPRYCEL [Suspect]
     Indication: CHRONIC MYELOID LEUKAEMIA
     Route: 048
     Dates: start: 20121215
  2. SYNTHROID [Concomitant]
  3. DULERA [Concomitant]
  4. LANTUS [Concomitant]
  5. METFORMIN [Concomitant]
  6. FLONASE [Concomitant]
  7. CRESTOR [Concomitant]
  8. FISH OIL [Concomitant]
  9. VITAMIN C [Concomitant]
  10. MULTIVITAMIN [Concomitant]
  11. LOSARTAN [Concomitant]

REACTIONS (2)
  - Headache [Unknown]
  - Cough [Unknown]
